FAERS Safety Report 6717113-1 (Version None)
Quarter: 2010Q2

REPORT INFORMATION
  Report Type: 
  Country: None (occurrence: None)
  Receive Date: 20100510
  Receipt Date: 20100510
  Transmission Date: 20101027
  Serious: No
  Sender: FDA-Public Use
  Company Number: None

PATIENT
  Age: 2 Year
  Sex: Male
  Weight: 13.1543 kg

DRUGS (1)
  1. CHILDREN'S BENADRYL ALLERGY [Suspect]
     Indication: NASOPHARYNGITIS
     Dosage: 3/4 TSP 1 PO
     Route: 048
     Dates: start: 20100316, end: 20100316

REACTIONS (8)
  - CONFUSIONAL STATE [None]
  - HEART RATE INCREASED [None]
  - OVERDOSE [None]
  - PRODUCT QUALITY ISSUE [None]
  - PYREXIA [None]
  - SOMNOLENCE [None]
  - TREMOR [None]
  - VOMITING [None]
